FAERS Safety Report 9403021 (Version 2)
Quarter: 2013Q4

REPORT INFORMATION
  Report Type: Spontaneous
  Country: IT (occurrence: IT)
  Receive Date: 20130716
  Receipt Date: 20131030
  Transmission Date: 20140711
  Serious: Yes (Hospitalization)
  Sender: FDA-Public Use
  Company Number: IT-BRISTOL-MYERS SQUIBB COMPANY-19108836

PATIENT
  Age: 60 Year
  Sex: Female

DRUGS (4)
  1. ERBITUX SOLN FOR INF [Suspect]
     Indication: COLON CANCER
     Route: 042
     Dates: start: 20130424, end: 20130701
  2. FLUOROURACIL [Suspect]
     Indication: COLON CANCER
     Dosage: 400MG/M2:24APR13:IV BOLOUS?1659MG,550MG:27MAY13?1200MG/M2:06AUG13
     Route: 042
     Dates: start: 20130424
  3. CAMPTO [Suspect]
     Indication: COLON CANCER
     Dosage: 250MG:27MAY13?190MG:10JUN13?90MG/M2:06AUG13
     Route: 042
     Dates: start: 20130424
  4. LEDERFOLINE [Suspect]
     Indication: COLON NEOPLASM
     Route: 042
     Dates: start: 20130424, end: 20130627

REACTIONS (3)
  - Neutropenia [Recovering/Resolving]
  - Presyncope [Recovering/Resolving]
  - Diarrhoea [Recovered/Resolved]
